FAERS Safety Report 12967107 (Version 1)
Quarter: 2016Q4

REPORT INFORMATION
  Report Type: Spontaneous
  Country: US (occurrence: US)
  Receive Date: 20161122
  Receipt Date: 20161122
  Transmission Date: 20170207
  Serious: No
  Sender: FDA-Public Use
  Company Number: None

PATIENT
  Sex: Female
  Weight: 68.04 kg

DRUGS (8)
  1. LOSARTAN. [Concomitant]
     Active Substance: LOSARTAN
  2. VITAMIN B12 [Concomitant]
     Active Substance: CYANOCOBALAMIN
  3. VENLAFAXINE [Concomitant]
     Active Substance: VENLAFAXINE HYDROCHLORIDE
  4. MULTIPLE VITAMIN [Concomitant]
     Active Substance: VITAMINS
  5. VITAMIN D3 + CALCIUM [Concomitant]
  6. STOOL SOFTENER (DOCUSATE CALCIUM) [Concomitant]
     Active Substance: DOCUSATE CALCIUM
  7. FISH OIL [Concomitant]
     Active Substance: FISH OIL
  8. DONEPEZIL. [Suspect]
     Active Substance: DONEPEZIL
     Indication: MEMORY IMPAIRMENT
     Route: 048
     Dates: start: 20161015, end: 20161018

REACTIONS (5)
  - Diarrhoea [None]
  - Pruritus generalised [None]
  - Abdominal discomfort [None]
  - Nightmare [None]
  - Insomnia [None]
